FAERS Safety Report 11715512 (Version 1)
Quarter: 2015Q4

REPORT INFORMATION
  Report Type: Spontaneous
  Country: US (occurrence: US)
  Receive Date: 20151109
  Receipt Date: 20151109
  Transmission Date: 20160304
  Serious: Yes (Death, Other)
  Sender: FDA-Public Use
  Company Number: PHHY2015US127673

PATIENT
  Age: 68 Year
  Sex: Male
  Weight: 99.32 kg

DRUGS (1)
  1. ARZERRA [Suspect]
     Active Substance: OFATUMUMAB
     Indication: CHRONIC LYMPHOCYTIC LEUKAEMIA
     Dosage: 2000 MG, EVERY 28 DAYS
     Route: 042
     Dates: start: 20120207, end: 20120516

REACTIONS (2)
  - Chest pain [Recovered/Resolved]
  - Metastatic malignant melanoma [Fatal]

NARRATIVE: CASE EVENT DATE: 20120406
